FAERS Safety Report 16012110 (Version 2)
Quarter: 2021Q2

REPORT INFORMATION
  Report Type: Report from Study
  Country: DE (occurrence: DE)
  Receive Date: 20190227
  Receipt Date: 20210614
  Transmission Date: 20210716
  Serious: Yes (Life-Threatening, Hospitalization, Other)
  Sender: FDA-Public Use
  Company Number: DE-TORRENT-00007393

PATIENT
  Age: 93 Year
  Sex: Female

DRUGS (10)
  1. BROMAZEPAM [Concomitant]
     Active Substance: BROMAZEPAM
     Indication: ANXIETY
     Dosage: 6 MG, UNK
  2. L?THYROXINE [Concomitant]
     Active Substance: LEVOTHYROXINE
     Indication: PRODUCT USED FOR UNKNOWN INDICATION
     Dosage: 75 UG
     Route: 065
  3. RISPERIDONE. [Interacting]
     Active Substance: RISPERIDONE
     Indication: RESTLESSNESS
     Dosage: 0.5 MG, TID  (0.5 MG THRICE A DAY)
     Route: 065
  4. RAMIPRIL. [Concomitant]
     Active Substance: RAMIPRIL
     Indication: PRODUCT USED FOR UNKNOWN INDICATION
     Dosage: 5 MG
     Route: 065
  5. BROMAZANIL [Suspect]
     Active Substance: BROMAZEPAM
     Indication: RESTLESSNESS
     Route: 065
  6. DOXEPIN [Suspect]
     Active Substance: DOXEPIN
     Indication: ANXIETY
     Dosage: 10 MG 2X, 10?10?25 MG
  7. LACTULOSE. [Concomitant]
     Active Substance: LACTULOSE
     Indication: PRODUCT USED FOR UNKNOWN INDICATION
     Dosage: 10 ML
     Route: 065
  8. BUSPIRONE HYDROCHLORIDE. [Interacting]
     Active Substance: BUSPIRONE HYDROCHLORIDE
     Indication: PSYCHOTIC DISORDER
     Dosage: 5 MG
     Route: 065
  9. ANASTROZOLE. [Concomitant]
     Active Substance: ANASTROZOLE
     Indication: BREAST CANCER
     Dosage: 1 MG
     Route: 065
  10. ASPIRIN. [Concomitant]
     Active Substance: ASPIRIN
     Indication: PRODUCT USED FOR UNKNOWN INDICATION
     Dosage: 100 MG

REACTIONS (13)
  - Body temperature increased [Recovering/Resolving]
  - Disturbance in attention [Recovering/Resolving]
  - Hypothermia [Recovered/Resolved]
  - Feeling cold [Recovered/Resolved]
  - Off label use [Unknown]
  - Somnolence [Recovering/Resolving]
  - C-reactive protein increased [Recovering/Resolving]
  - Autonomic nervous system imbalance [Recovered/Resolved]
  - Hypervigilance [Recovered/Resolved]
  - Hypertonia [Recovering/Resolving]
  - Somnolence [Recovered/Resolved]
  - Body temperature decreased [Recovering/Resolving]
  - Drug interaction [Recovered/Resolved]
